FAERS Safety Report 17427804 (Version 1)
Quarter: 2020Q1

REPORT INFORMATION
  Report Type: Report from Study
  Country: CO (occurrence: CO)
  Receive Date: 20200218
  Receipt Date: 20200218
  Transmission Date: 20200409
  Serious: Yes (Hospitalization)
  Sender: FDA-Public Use
  Company Number: CO-ROCHE-2479974

PATIENT
  Sex: Female

DRUGS (1)
  1. RITUXIMAB. [Suspect]
     Active Substance: RITUXIMAB
     Indication: ARTHRITIS
     Route: 065

REACTIONS (7)
  - Pain [Not Recovered/Not Resolved]
  - Productive cough [Recovering/Resolving]
  - Dizziness [Recovering/Resolving]
  - Swelling [Unknown]
  - Pain in extremity [Recovering/Resolving]
  - Muscular weakness [Recovering/Resolving]
  - Asthenia [Recovering/Resolving]
